FAERS Safety Report 15365365 (Version 1)
Quarter: 2018Q3

REPORT INFORMATION
  Report Type: Spontaneous
  Country: US (occurrence: US)
  Receive Date: 20180831
  Receipt Date: 20180831
  Transmission Date: 20181010
  Serious: No
  Sender: FDA-Public Use
  Company Number: None

PATIENT
  Age: 44 Year
  Sex: Male
  Weight: 87.3 kg

DRUGS (12)
  1. VITAMIN D2 [Concomitant]
     Active Substance: ERGOCALCIFEROL
  2. ESTERIOL/ESTRADIOL/PROGRESTERONE CREAM [Concomitant]
  3. DIAXINOL [Concomitant]
  4. LEXAPRO [Concomitant]
     Active Substance: ESCITALOPRAM OXALATE
  5. REACTED IRON [Concomitant]
  6. CALCIUM [Concomitant]
     Active Substance: CALCIUM
  7. METFORMIN ER [Suspect]
     Active Substance: METFORMIN HYDROCHLORIDE
     Indication: DIABETES MELLITUS
     Dosage: ?          QUANTITY:1 TABLET(S);?
     Route: 048
     Dates: start: 20180806, end: 20180821
  8. ARMOUR THYROID [Concomitant]
     Active Substance: THYROID, PORCINE
  9. TOPAMAX [Concomitant]
     Active Substance: TOPIRAMATE
  10. GABAPENTIN. [Concomitant]
     Active Substance: GABAPENTIN
  11. BUFFERED VITAMIN C [Concomitant]
  12. PROGESTERONE. [Concomitant]
     Active Substance: PROGESTERONE

REACTIONS (6)
  - Product substitution issue [None]
  - Swelling face [None]
  - Hypersensitivity [None]
  - Hypertension [None]
  - Vomiting [None]
  - Nausea [None]

NARRATIVE: CASE EVENT DATE: 20180815
